FAERS Safety Report 6962770-8 (Version None)
Quarter: 2010Q3

REPORT INFORMATION
  Report Type: 
  Country: None (occurrence: None)
  Receive Date: 20100902
  Receipt Date: 20100804
  Transmission Date: 20110219
  Serious: Yes (Life-Threatening)
  Sender: FDA-Public Use
  Company Number: FI-PFIZER INC-2010107975

PATIENT
  Age: 54 Year
  Sex: Male
  Weight: 56 kg

DRUGS (5)
  1. MEDROL [Suspect]
     Indication: IMMUNOSUPPRESSION
     Dosage: UNK
     Dates: start: 20080628
  2. MYCOPHENOLATE MOFETIL [Concomitant]
     Indication: IMMUNOSUPPRESSION
     Dosage: UNK
     Dates: start: 20080628, end: 20091127
  3. CYCLOSPORINE [Concomitant]
     Indication: PROPHYLAXIS AGAINST TRANSPLANT REJECTION
     Dosage: UNK
     Dates: start: 20080628, end: 20091002
  4. ACETYLSALICYLIC ACID [Concomitant]
     Indication: ANTICOAGULANT THERAPY
     Dosage: UNK
     Dates: start: 20080707
  5. BISOPROLOL [Concomitant]
     Indication: HYPERTENSION
     Dosage: UNK
     Dates: start: 20080829

REACTIONS (1)
  - HEPATIC NEOPLASM MALIGNANT RECURRENT [None]
